FAERS Safety Report 15121728 (Version 1)
Quarter: 2018Q3

REPORT INFORMATION
  Report Type: Spontaneous
  Country: DE (occurrence: DE)
  Receive Date: 20180709
  Receipt Date: 20180709
  Transmission Date: 20181010
  Serious: Yes (Other)
  Sender: FDA-Public Use
  Company Number: DE-PFIZER INC-2018269355

PATIENT
  Age: 1 Day
  Sex: Male
  Weight: 2.26 kg

DRUGS (6)
  1. ZELDOX [Suspect]
     Active Substance: ZIPRASIDONE
     Indication: PSYCHOTIC DISORDER
     Dosage: 60 [MG/D ] (0. ? 38. GESTATIONAL WEEK)
     Route: 064
     Dates: start: 20170121, end: 20171014
  2. FOLIO FORTE [Concomitant]
     Active Substance: FOLIC ACID\VITAMINS
     Indication: PROPHYLAXIS OF NEURAL TUBE DEFECT
     Dosage: 0.8 MG, DAILY
     Route: 064
     Dates: start: 20170121, end: 2017
  3. IBUPROFEN. [Concomitant]
     Active Substance: IBUPROFEN
     Indication: HEADACHE
     Dosage: 400 [MG/D ]/ ALTOGETHER ON SEVEN DAYS (0. ? 26.6. GESTATIONAL WEEK)
     Route: 064
     Dates: start: 20170121, end: 2017
  4. IMAP [Concomitant]
     Active Substance: FLUSPIRILENE
     Indication: PSYCHOTIC DISORDER
     Dosage: UNK, WEEKLY (0.4. ? 1.6. GESTATIONAL WEEK)
     Route: 064
     Dates: start: 2017, end: 2017
  5. BIPERIDEN [Concomitant]
     Active Substance: BIPERIDEN
     Indication: EXTRAPYRAMIDAL DISORDER
     Dosage: 2 [MG/D ]/ ON DEMAND, APPROXIMATELY ONCE PER WEEK (0. ? 5.5. GESTATIONAL WEEK)
     Route: 064
     Dates: start: 20170121, end: 2017
  6. NATRIUMCHLORID NORIDEM [Concomitant]
     Active Substance: SODIUM CHLORIDE
     Indication: GASTROINTESTINAL INFECTION
     Dosage: UNK (33. ? 34. GESTATIONAL WEEK)
     Route: 064
     Dates: start: 2017, end: 2017

REACTIONS (2)
  - Maternal exposure during pregnancy [Recovered/Resolved]
  - Small for dates baby [Recovered/Resolved]

NARRATIVE: CASE EVENT DATE: 20170121
